FAERS Safety Report 7764758-6 (Version None)
Quarter: 2011Q3

REPORT INFORMATION
  Report Type: 
  Country: None (occurrence: None)
  Receive Date: 20110921
  Receipt Date: 20110921
  Transmission Date: 20111222
  Serious: Yes (Life-Threatening, Hospitalization)
  Sender: FDA-Public Use
  Company Number: None

PATIENT
  Age: 31 Year
  Sex: Female
  Weight: 108.7 kg

DRUGS (11)
  1. SODIUM CHLORIDE 0.9% [Concomitant]
     Route: 042
  2. CALCIUM GLUCONATE [Concomitant]
     Route: 048
  3. BENADRYL [Concomitant]
     Route: 048
  4. ZOFRAN [Suspect]
     Indication: VOMITING
     Dosage: 4 MG -2 ML-
     Route: 042
     Dates: start: 20110914, end: 20110914
  5. COLACE [Concomitant]
     Route: 048
  6. TYLENOL-500 [Concomitant]
     Route: 048
  7. LASIX [Concomitant]
     Route: 048
  8. MORPHINE SULFATE [Concomitant]
  9. SODIUM CHLORIDE [Concomitant]
     Route: 042
  10. REGLAN [Concomitant]
     Route: 048
  11. MAGNESIUM SULFATE [Concomitant]
     Route: 048

REACTIONS (6)
  - DRY SKIN [None]
  - MENTAL STATUS CHANGES [None]
  - PALLOR [None]
  - SKIN WARM [None]
  - UNRESPONSIVE TO STIMULI [None]
  - DRUG HYPERSENSITIVITY [None]
